FAERS Safety Report 16376219 (Version 2)
Quarter: 2019Q4

REPORT INFORMATION
  Report Type: Spontaneous
  Country: CA (occurrence: CA)
  Receive Date: 20190531
  Receipt Date: 20191014
  Transmission Date: 20200122
  Serious: Yes (Other)
  Sender: FDA-Public Use
  Company Number: CA-TEVA-2019-CA-1055725

PATIENT
  Sex: Female

DRUGS (6)
  1. IBRANCE [Suspect]
     Active Substance: PALBOCICLIB
     Dosage: 100 MILLIGRAM DAILY;
     Route: 030
  2. TAMOXIFEN CITRATE. [Suspect]
     Active Substance: TAMOXIFEN CITRATE
     Indication: PRODUCT USED FOR UNKNOWN INDICATION
     Route: 048
  3. ANASTROZOLE. [Concomitant]
     Active Substance: ANASTROZOLE
  4. LETROZOLE. [Suspect]
     Active Substance: LETROZOLE
     Indication: PRODUCT USED FOR UNKNOWN INDICATION
     Dosage: 2.5 MILLIGRAM DAILY;
     Route: 065
  5. IBRANCE [Suspect]
     Active Substance: PALBOCICLIB
     Indication: PRODUCT USED FOR UNKNOWN INDICATION
     Route: 030
  6. CAPECITABINE. [Concomitant]
     Active Substance: CAPECITABINE

REACTIONS (7)
  - Metastases to liver [Unknown]
  - Incorrect route of product administration [Unknown]
  - Neoplasm progression [Unknown]
  - Irritability [Unknown]
  - Fatigue [Unknown]
  - Sleep disorder [Unknown]
  - Neutropenia [Unknown]
